FAERS Safety Report 4411267-8 (Version None)
Quarter: 2004Q3

REPORT INFORMATION
  Report Type: 
  Country: None (occurrence: None)
  Receive Date: 20040727
  Receipt Date: 20040716
  Transmission Date: 20050211
  Serious: Yes (Other)
  Sender: FDA-Public Use
  Company Number: 2004037900

PATIENT
  Sex: 0

DRUGS (2)
  1. NORVASC [Suspect]
     Indication: HYPERTENSION
     Dosage: 2.5 MG (2.5 MG, 1 IN 1 D) , ORAL
     Route: 048
  2. DIURETICS (DIURETICS) [Concomitant]

REACTIONS (8)
  - BLOOD PRESSURE FLUCTUATION [None]
  - COUGH [None]
  - EPISTAXIS [None]
  - HYPERTENSION [None]
  - MENTAL DISORDER [None]
  - RETINAL HAEMORRHAGE [None]
  - TINNITUS [None]
  - TREATMENT NONCOMPLIANCE [None]
